FAERS Safety Report 14032104 (Version 3)
Quarter: 2017Q4

REPORT INFORMATION
  Report Type: Spontaneous
  Country: HN (occurrence: HN)
  Receive Date: 20171002
  Receipt Date: 20171102
  Transmission Date: 20180321
  Serious: Yes (Hospitalization, Other)
  Sender: FDA-Public Use
  Company Number: HN-PFIZER INC-2017417217

PATIENT
  Age: 84 Year
  Sex: Male

DRUGS (5)
  1. PAMEZONE [Concomitant]
     Dosage: UNK
  2. LIPITOR [Concomitant]
     Active Substance: ATORVASTATIN CALCIUM
     Indication: BLOOD CHOLESTEROL ABNORMAL
     Dosage: 40 MG, 1X/DAY
     Dates: start: 201701
  3. ALTRULINE [Suspect]
     Active Substance: SERTRALINE HYDROCHLORIDE
     Indication: DEPRESSION
     Dosage: 50 MG, 1X/DAY
     Dates: start: 2012
  4. NATRILIX /00340101/ [Concomitant]
     Active Substance: INDAPAMIDE
     Dosage: UNK
  5. EUTIROX [Concomitant]
     Active Substance: LEVOTHYROXINE SODIUM
     Dosage: UNK

REACTIONS (3)
  - Blood cholesterol decreased [Unknown]
  - Mental disorder [Unknown]
  - Aneurysm [Unknown]

NARRATIVE: CASE EVENT DATE: 2017
